FAERS Safety Report 5374782-9 (Version None)
Quarter: 2007Q2

REPORT INFORMATION
  Report Type: 
  Country: None (occurrence: None)
  Receive Date: 20070629
  Receipt Date: 20070619
  Transmission Date: 20071010
  Serious: Yes (Hospitalization)
  Sender: FDA-Public Use
  Company Number: JP-ROCHE-490320

PATIENT
  Age: 7 Year
  Sex: Female
  Weight: 18 kg

DRUGS (3)
  1. ROCEPHIN [Suspect]
     Indication: PNEUMONIA BACTERIAL
     Route: 041
     Dates: start: 20070302, end: 20070309
  2. CLARITHROMYCIN [Concomitant]
     Dosage: REPORTED DRUG NAME: KLARICID: DRY SYRUP.
     Route: 048
     Dates: start: 20070302, end: 20070309
  3. AMOXICILLIN TRIHYDRATE [Concomitant]
     Dosage: REPORTED FORMULATION: FINE GRANULES.
     Route: 048
     Dates: start: 20070310, end: 20070316

REACTIONS (4)
  - ABDOMINAL PAIN [None]
  - CHOLELITHIASIS [None]
  - HEPATIC FUNCTION ABNORMAL [None]
  - VOMITING [None]
